FAERS Safety Report 23144492 (Version 1)
Quarter: 2023Q4

REPORT INFORMATION
  Report Type: Spontaneous
  Country: IT (occurrence: IT)
  Receive Date: 20231103
  Receipt Date: 20231103
  Transmission Date: 20240110
  Serious: Yes (Other)
  Sender: FDA-Public Use
  Company Number: IT-SUN PHARMACEUTICAL INDUSTRIES LTD-2023RR-416173

PATIENT
  Age: 63 Year
  Sex: Female
  Weight: 53 kg

DRUGS (2)
  1. OXALIPLATIN [Suspect]
     Active Substance: OXALIPLATIN
     Indication: Adenocarcinoma gastric
     Dosage: 195 MILLIGRAM, 195MG OGNI 21 GG
     Route: 040
     Dates: start: 20230616, end: 20230616
  2. CAPECITABINE [Suspect]
     Active Substance: CAPECITABINE
     Indication: Adenocarcinoma gastric
     Dosage: 3000 MILLIGRAM, QD, 3000MG PER 14 GG
     Route: 048
     Dates: start: 20230617, end: 20230630

REACTIONS (3)
  - Hyperthermia [Recovering/Resolving]
  - Asthenia [Recovering/Resolving]
  - Diarrhoea [Recovering/Resolving]

NARRATIVE: CASE EVENT DATE: 20230617
